FAERS Safety Report 10049788 (Version 1)
Quarter: 2014Q2

REPORT INFORMATION
  Report Type: Spontaneous
  Country: HK (occurrence: HK)
  Receive Date: 20140401
  Receipt Date: 20140401
  Transmission Date: 20141212
  Serious: Yes (Other)
  Sender: FDA-Public Use
  Company Number: HK-MYLANLABS-2014S1006509

PATIENT
  Age: 28 Year
  Sex: Female

DRUGS (2)
  1. KETAMINE [Suspect]
     Indication: DRUG ABUSE
     Route: 065
  2. KETAMINE [Suspect]
     Indication: OFF LABEL USE
     Route: 065

REACTIONS (1)
  - Biliary tract disorder [Recovered/Resolved with Sequelae]
